FAERS Safety Report 24051721 (Version 1)
Quarter: 2024Q3

REPORT INFORMATION
  Report Type: Spontaneous
  Country: US (occurrence: US)
  Receive Date: 20240704
  Receipt Date: 20240704
  Transmission Date: 20241016
  Serious: No
  Sender: TEVA
  Company Number: US-TEVA-VS-3213863

PATIENT
  Sex: Female

DRUGS (1)
  1. MUPIROCIN [Suspect]
     Active Substance: MUPIROCIN
     Indication: Eczema
     Dosage: UNKNOWN
     Route: 065

REACTIONS (1)
  - Skin infection [Not Recovered/Not Resolved]

NARRATIVE: CASE EVENT DATE: 20240616
